FAERS Safety Report 6719812-4 (Version None)
Quarter: 2010Q2

REPORT INFORMATION
  Report Type: 
  Country: None (occurrence: None)
  Receive Date: 20100511
  Receipt Date: 20100428
  Transmission Date: 20101027
  Serious: Yes (Other)
  Sender: FDA-Public Use
  Company Number: PHHY2010AT27318

PATIENT
  Age: 86 Year
  Sex: Female
  Weight: 70 kg

DRUGS (7)
  1. ALISKIREN ALI+ [Suspect]
     Dosage: 300 MG, UNK
     Dates: start: 20090603, end: 20090703
  2. DIOVAN [Suspect]
     Dosage: 80 MG, QD
     Dates: start: 20090901
  3. DIOVAN HCT [Suspect]
     Dosage: UNK
     Dates: start: 20090901
  4. LASIX [Suspect]
     Dosage: 40 MG, QD
     Dates: start: 20090603
  5. NEBIVOLOL [Suspect]
     Dosage: UNK, ONCE DAILY
     Dates: start: 20090603
  6. NOMEXOR [Concomitant]
     Dosage: 5 MG DAILY
     Dates: start: 20090901
  7. ITERIUM [Concomitant]
     Dosage: 2 MG DAILY
     Dates: start: 20080101

REACTIONS (4)
  - BLOOD PRESSURE INCREASED [None]
  - DRUG INEFFECTIVE [None]
  - MICROALBUMINURIA [None]
  - RENAL ARTERY STENOSIS [None]
